FAERS Safety Report 5690141-3 (Version None)
Quarter: 2008Q1

REPORT INFORMATION
  Report Type: 
  Country: None (occurrence: None)
  Receive Date: 20080331
  Receipt Date: 20080331
  Transmission Date: 20080703
  Serious: Yes (Other)
  Sender: FDA-Public Use
  Company Number: None

PATIENT
  Age: 48 Year
  Sex: Male
  Weight: 79.3795 kg

DRUGS (1)
  1. VIAGRA [Suspect]
     Indication: ERECTILE DYSFUNCTION
     Dosage: APPROX. 40MG APPROX. BI-MONTHLY PO
     Route: 048
     Dates: start: 20040101, end: 20070801

REACTIONS (3)
  - MALE ORGASMIC DISORDER [None]
  - PEYRONIE'S DISEASE [None]
  - SPONTANEOUS PENILE ERECTION [None]
